FAERS Safety Report 25034373 (Version 5)
Quarter: 2025Q2

REPORT INFORMATION
  Report Type: Report from Study
  Country: US (occurrence: US)
  Receive Date: 20250304
  Receipt Date: 20250428
  Transmission Date: 20250717
  Serious: Yes (Hospitalization, Other)
  Sender: DECIPHERA PHARMACEUTICALS
  Company Number: US-DECIPHERA PHARMACEUTICALS LLC-2025US000153

PATIENT
  Age: 82 Year
  Sex: Male

DRUGS (3)
  1. QINLOCK [Suspect]
     Active Substance: RIPRETINIB
     Indication: Gastrointestinal stromal tumour
     Dosage: 150 MILLIGRAM, QD
     Route: 048
     Dates: start: 202502, end: 2025
  2. QINLOCK [Suspect]
     Active Substance: RIPRETINIB
     Dosage: 100 MILLIGRAM, QD
     Route: 048
     Dates: start: 2025, end: 2025
  3. QINLOCK [Suspect]
     Active Substance: RIPRETINIB
     Dosage: 150 MILLIGRAM, QD (3 TABLETS)
     Route: 048
     Dates: start: 2025

REACTIONS (7)
  - Infection [Not Recovered/Not Resolved]
  - Seizure [Unknown]
  - Fall [Unknown]
  - Drug tolerance decreased [Unknown]
  - Memory impairment [Unknown]
  - Alopecia [Unknown]
  - Asthenia [Unknown]

NARRATIVE: CASE EVENT DATE: 20250101
